FAERS Safety Report 24090562 (Version 1)
Quarter: 2024Q3

REPORT INFORMATION
  Report Type: Spontaneous
  Country: US (occurrence: None)
  Receive Date: 20240712
  Receipt Date: 20240712
  Transmission Date: 20241016
  Serious: Yes (Life-Threatening, Hospitalization, Disabling)
  Sender: Public
  Company Number: None

PATIENT
  Age: 68 Year
  Sex: Female
  Weight: 87.3 kg

DRUGS (2)
  1. MAGNESIUM CITRATE [Suspect]
     Active Substance: MAGNESIUM CITRATE
     Indication: Endoscopy
     Dosage: OTHER QUANTITY : 10 OUNCE(S)?FREQUENCY : 3 TIMES A DAY?
     Route: 048
     Dates: start: 20240708, end: 20240708
  2. LEVOTHRYROXINE [Concomitant]

REACTIONS (3)
  - Respiratory distress [None]
  - Chest pain [None]
  - Cardiac disorder [None]

NARRATIVE: CASE EVENT DATE: 20240708
